FAERS Safety Report 7304492-X (Version None)
Quarter: 2011Q1

REPORT INFORMATION
  Report Type: 
  Country: None (occurrence: None)
  Receive Date: 20110221
  Receipt Date: 20110207
  Transmission Date: 20110831
  Serious: Yes (Other)
  Sender: FDA-Public Use
  Company Number: JP-GENENTECH-313786

PATIENT

DRUGS (8)
  1. DOXORUBICIN [Suspect]
     Indication: LYMPHOMA
     Dosage: 40 MG/M2, UNK
     Route: 042
  2. ETOPOSIDE [Suspect]
     Indication: LYMPHOMA
     Dosage: 40 MG, UNK
     Route: 037
  3. METHOTREXATE [Suspect]
     Indication: LYMPHOMA
     Dosage: UNK
     Route: 042
  4. RITUXIMAB [Suspect]
     Indication: LYMPHOMA
     Dosage: 375 MG/M2, UNK
     Route: 042
  5. VINCRISTINE [Suspect]
     Indication: LYMPHOMA
     Dosage: 1.5 MG/M2, UNK
     Route: 042
  6. IFOSFAMIDE [Suspect]
     Indication: LYMPHOMA
     Dosage: UNK
     Route: 042
  7. CYCLOPHOSPHAMIDE [Suspect]
     Indication: LYMPHOMA
     Dosage: UNK
     Route: 042
  8. CYTARABINE [Suspect]
     Indication: LYMPHOMA
     Dosage: ON DAYS 1 AND 3
     Route: 037

REACTIONS (11)
  - ASPARTATE AMINOTRANSFERASE INCREASED [None]
  - STOMATITIS [None]
  - WHITE BLOOD CELL COUNT DECREASED [None]
  - ALANINE AMINOTRANSFERASE INCREASED [None]
  - NEUTROPENIA [None]
  - SEPSIS [None]
  - BLOOD CREATININE INCREASED [None]
  - ANAEMIA [None]
  - FEBRILE NEUTROPENIA [None]
  - PNEUMONIA BACTERIAL [None]
  - THROMBOCYTOPENIA [None]
